FAERS Safety Report 19744347 (Version 1)
Quarter: 2021Q3

REPORT INFORMATION
  Report Type: Spontaneous
  Country: US (occurrence: US)
  Receive Date: 20210820
  Receipt Date: 20210820
  Transmission Date: 20211014
  Serious: Yes (Death)
  Sender: FDA-Public Use
  Company Number: None

PATIENT
  Age: 81 Year
  Sex: Female

DRUGS (4)
  1. VANCOMYCIN [Concomitant]
     Active Substance: VANCOMYCIN
     Dates: start: 20210701, end: 20210804
  2. RIFAMPIN. [Concomitant]
     Active Substance: RIFAMPIN
     Dates: start: 20210707, end: 20210805
  3. LINEZOLID. [Suspect]
     Active Substance: LINEZOLID
     Indication: STAPHYLOCOCCAL BACTERAEMIA
     Route: 048
     Dates: start: 20210806, end: 20210810
  4. SPIRONOLACTONE. [Concomitant]
     Active Substance: SPIRONOLACTONE

REACTIONS (5)
  - Cardio-respiratory arrest [None]
  - Bradycardia [None]
  - Asthenia [None]
  - Blood potassium increased [None]
  - Cyanosis [None]

NARRATIVE: CASE EVENT DATE: 20210810
